FAERS Safety Report 8062802-2 (Version None)
Quarter: 2012Q1

REPORT INFORMATION
  Report Type: 
  Country: None (occurrence: None)
  Receive Date: 20120123
  Receipt Date: 20120116
  Transmission Date: 20120608
  Serious: Yes (Hospitalization)
  Sender: FDA-Public Use
  Company Number: US-AMGEN-USASP2012002916

PATIENT
  Age: 51 Year
  Sex: Female

DRUGS (1)
  1. ENBREL [Suspect]
     Indication: PRODUCT USED FOR UNKNOWN INDICATION
     Dosage: 50 MG, QWK
     Dates: start: 20050101

REACTIONS (5)
  - DYSPNOEA [None]
  - DYSURIA [None]
  - UTERINE LEIOMYOMA [None]
  - MAMMOPLASTY [None]
  - INCISIONAL HERNIA [None]
